FAERS Safety Report 9097633 (Version 1)
Quarter: 2013Q1

REPORT INFORMATION
  Report Type: Spontaneous
  Country: US (occurrence: US)
  Receive Date: 20130212
  Receipt Date: 20130212
  Transmission Date: 20140127
  Serious: No
  Sender: FDA-Public Use
  Company Number: US-BAYER-2013-015489

PATIENT
  Age: 39 Year
  Sex: Female

DRUGS (1)
  1. BEYAZ [Suspect]
     Indication: MENSTRUATION IRREGULAR
     Dosage: UNK
     Dates: start: 201212

REACTIONS (2)
  - Rash [None]
  - Urticaria [None]
